FAERS Safety Report 7481511-1 (Version None)
Quarter: 2011Q2

REPORT INFORMATION
  Report Type: 
  Country: None (occurrence: None)
  Receive Date: 20110516
  Receipt Date: 20110427
  Transmission Date: 20111010
  Serious: No
  Sender: FDA-Public Use
  Company Number: US-B.I. PHARMACEUTICALS,INC./RIDGEFIELD-2011-BP-08497BP

PATIENT
  Sex: Female

DRUGS (10)
  1. CALCIUM [Concomitant]
     Indication: OSTEOPOROSIS
  2. MAGNESIUM [Concomitant]
     Indication: OSTEOPOROSIS
  3. DILTIAZEM [Concomitant]
     Indication: ATRIAL FIBRILLATION
  4. LEVOXYL [Concomitant]
     Indication: HYPOTHYROIDISM
     Dosage: 75 MG
  5. PRADAXA [Suspect]
     Indication: HEART RATE IRREGULAR
  6. DILTIAZEM [Concomitant]
     Indication: HEART RATE IRREGULAR
     Dosage: 120 MG
  7. LUMIGAN [Concomitant]
     Indication: GLAUCOMA
     Route: 031
  8. PRADAXA [Suspect]
     Indication: ATRIAL FIBRILLATION
     Dosage: 300 MG
     Route: 048
     Dates: start: 20110218
  9. PRADAXA [Suspect]
     Indication: TRANSIENT ISCHAEMIC ATTACK
  10. VITAMIN D [Concomitant]
     Indication: OSTEOPOROSIS

REACTIONS (3)
  - BLOOD URINE PRESENT [None]
  - OEDEMA PERIPHERAL [None]
  - PAIN IN EXTREMITY [None]
